FAERS Safety Report 8200784-0 (Version None)
Quarter: 2012Q1

REPORT INFORMATION
  Report Type: 
  Country: None (occurrence: None)
  Receive Date: 20120307
  Receipt Date: 20120229
  Transmission Date: 20120608
  Serious: Yes (Hospitalization)
  Sender: FDA-Public Use
  Company Number: 216865

PATIENT
  Age: 93 Year
  Sex: Female

DRUGS (10)
  1. ZOCOR [Concomitant]
  2. ACEBUTOLOL [Concomitant]
  3. AMLODIPINE BESYLATE [Concomitant]
  4. FUROSEMIDE [Concomitant]
  5. IRBESARTAN [Concomitant]
  6. SECTRAL [Concomitant]
  7. INNOHEP [Suspect]
     Indication: THROMBOPHLEBITIS
     Dosage: SUBCUTANEOUS
     Route: 058
     Dates: start: 20101209, end: 20101215
  8. COUMADIN [Suspect]
     Indication: THROMBOPHLEBITIS
     Dosage: ORAL
     Route: 048
     Dates: start: 20101209, end: 20101215
  9. OMEPRAZOLE [Concomitant]
  10. POTASSIUM CHLORIDE [Concomitant]

REACTIONS (3)
  - OVERDOSE [None]
  - MICROCYTIC ANAEMIA [None]
  - INTERNATIONAL NORMALISED RATIO INCREASED [None]
